FAERS Safety Report 25063922 (Version 1)
Quarter: 2025Q1

REPORT INFORMATION
  Report Type: Spontaneous
  Country: IT (occurrence: IT)
  Receive Date: 20250311
  Receipt Date: 20250311
  Transmission Date: 20250409
  Serious: Yes (Death, Other)
  Sender: AUROBINDO
  Company Number: IT-ABBVIE-6143322

PATIENT
  Age: 73 Year
  Sex: Female

DRUGS (62)
  1. AZACITIDINE [Suspect]
     Active Substance: AZACITIDINE
     Indication: Acute myeloid leukaemia
     Route: 065
     Dates: start: 20240718, end: 20240725
  2. VENETOCLAX [Suspect]
     Active Substance: VENETOCLAX
     Indication: Acute myeloid leukaemia
     Route: 048
     Dates: start: 20240718, end: 20240814
  3. VENETOCLAX [Suspect]
     Active Substance: VENETOCLAX
     Route: 048
     Dates: start: 20240815, end: 20240819
  4. CHOLECALCIFEROL [Concomitant]
     Active Substance: CHOLECALCIFEROL
     Indication: Prophylaxis
     Route: 048
     Dates: start: 20240724, end: 20240724
  5. CHOLECALCIFEROL [Concomitant]
     Active Substance: CHOLECALCIFEROL
     Indication: Vitamin D deficiency
     Route: 048
     Dates: start: 20240814, end: 20240814
  6. SODIUM CHLORIDE [Concomitant]
     Active Substance: SODIUM CHLORIDE
     Indication: Dehydration
     Route: 042
     Dates: start: 20240717, end: 20240825
  7. ACYCLOVIR [Concomitant]
     Active Substance: ACYCLOVIR
     Indication: Antiviral prophylaxis
     Route: 048
     Dates: start: 2017, end: 20240822
  8. PIPERACILLIN SODIUM\TAZOBACTAM SODIUM [Concomitant]
     Active Substance: PIPERACILLIN SODIUM\TAZOBACTAM SODIUM
     Indication: Infection
     Route: 042
     Dates: start: 20240815, end: 20240823
  9. CALCIUM [Concomitant]
     Active Substance: CALCIUM
     Indication: Prophylaxis
     Route: 048
     Dates: start: 2024, end: 20240822
  10. CALCIUM [Concomitant]
     Active Substance: CALCIUM
     Indication: Mineral supplementation
  11. ONDANSETRON [Concomitant]
     Active Substance: ONDANSETRON
     Indication: Prophylaxis of nausea and vomiting
     Route: 042
     Dates: start: 20240717, end: 20240726
  12. PREGABALIN [Concomitant]
     Active Substance: PREGABALIN
     Indication: Anxiety disorder
     Route: 048
     Dates: start: 20240702, end: 20240810
  13. Luvion [Concomitant]
     Indication: Prophylaxis
     Route: 042
     Dates: start: 20240709, end: 20240714
  14. SULFAMETHOXAZOLE\TRIMETHOPRIM [Concomitant]
     Active Substance: SULFAMETHOXAZOLE\TRIMETHOPRIM
     Indication: Antibiotic prophylaxis
     Route: 048
     Dates: start: 20240703, end: 20240823
  15. MORPHINE [Concomitant]
     Active Substance: MORPHINE
     Indication: Disease progression
     Route: 042
     Dates: start: 20240823, end: 20240826
  16. DAPTOMYCIN [Concomitant]
     Active Substance: DAPTOMYCIN
     Indication: Infection
     Route: 042
     Dates: start: 20240705, end: 20240705
  17. DAPTOMYCIN [Concomitant]
     Active Substance: DAPTOMYCIN
     Route: 042
     Dates: start: 20240706, end: 20240708
  18. CHLORHEXIDINE [Concomitant]
     Active Substance: CHLORHEXIDINE
     Indication: Infection prophylaxis
     Route: 048
     Dates: start: 20240702, end: 20240822
  19. FIBRINOGEN HUMAN [Concomitant]
     Active Substance: FIBRINOGEN HUMAN
     Indication: Haemorrhage prophylaxis
     Route: 042
     Dates: start: 20240730, end: 20240801
  20. ANTITHROMBIN III HUMAN [Concomitant]
     Active Substance: ANTITHROMBIN III HUMAN
     Indication: Thrombosis prophylaxis
     Route: 042
     Dates: start: 20240703, end: 20240707
  21. ANTITHROMBIN III HUMAN [Concomitant]
     Active Substance: ANTITHROMBIN III HUMAN
     Route: 042
     Dates: start: 20240710, end: 20240712
  22. ANTITHROMBIN III HUMAN [Concomitant]
     Active Substance: ANTITHROMBIN III HUMAN
     Route: 042
     Dates: start: 20240823, end: 20240823
  23. MEROPENEM [Concomitant]
     Active Substance: MEROPENEM
     Indication: Antibiotic prophylaxis
     Route: 042
     Dates: start: 20240709, end: 20240722
  24. MEROPENEM [Concomitant]
     Active Substance: MEROPENEM
     Route: 042
     Dates: start: 20240723, end: 20240725
  25. NYSTATIN [Concomitant]
     Active Substance: NYSTATIN
     Indication: Antifungal prophylaxis
     Route: 048
     Dates: start: 2017, end: 20240822
  26. FUROSEMIDE [Concomitant]
     Active Substance: FUROSEMIDE
     Indication: Prophylaxis
     Route: 042
     Dates: start: 20240708, end: 20240708
  27. FUROSEMIDE [Concomitant]
     Active Substance: FUROSEMIDE
     Route: 042
     Dates: start: 20240709, end: 20240715
  28. FUROSEMIDE [Concomitant]
     Active Substance: FUROSEMIDE
     Route: 042
     Dates: start: 20240716, end: 20240716
  29. FUROSEMIDE [Concomitant]
     Active Substance: FUROSEMIDE
     Route: 042
     Dates: start: 20240717, end: 20240720
  30. FUROSEMIDE [Concomitant]
     Active Substance: FUROSEMIDE
     Route: 042
     Dates: start: 20240721, end: 20240731
  31. LINEZOLID [Concomitant]
     Active Substance: LINEZOLID
     Indication: Antibiotic prophylaxis
     Route: 042
     Dates: start: 20240704, end: 20240823
  32. SERTRALINE HYDROCHLORIDE [Concomitant]
     Active Substance: SERTRALINE HYDROCHLORIDE
     Indication: Anxiety disorder
     Route: 048
     Dates: start: 20240703, end: 20240822
  33. ALLOPURINOL [Concomitant]
     Active Substance: ALLOPURINOL
     Indication: Prophylaxis
     Route: 048
     Dates: start: 20240702, end: 20240810
  34. METFORMIN [Concomitant]
     Active Substance: METFORMIN HYDROCHLORIDE
     Indication: Type 2 diabetes mellitus
     Route: 065
     Dates: start: 2017, end: 20240822
  35. LORAZEPAM [Concomitant]
     Active Substance: LORAZEPAM
     Indication: Anxiety disorder
     Route: 048
     Dates: start: 2018, end: 20240822
  36. BROMAZEPAM [Concomitant]
     Active Substance: BROMAZEPAM
     Indication: Prophylaxis
     Route: 048
     Dates: start: 20240719, end: 20240719
  37. POSACONAZOLE [Concomitant]
     Active Substance: POSACONAZOLE
     Indication: Antifungal prophylaxis
     Route: 048
     Dates: start: 20240709, end: 20240822
  38. MIDAZOLAM [Concomitant]
     Active Substance: MIDAZOLAM
     Indication: Sedation
     Route: 042
     Dates: start: 20240823, end: 20240825
  39. PIPERACILLIN SODIUM\TAZOBACTAM SODIUM [Concomitant]
     Active Substance: PIPERACILLIN SODIUM\TAZOBACTAM SODIUM
     Indication: Infection
     Route: 042
     Dates: start: 20240702, end: 20240709
  40. Oxycodone/naloxone g.l. [Concomitant]
     Indication: Back pain
     Route: 048
     Dates: start: 2017, end: 20240822
  41. PHYTONADIONE [Concomitant]
     Active Substance: PHYTONADIONE
     Indication: Haemorrhage prophylaxis
     Route: 042
     Dates: start: 20240726, end: 20240726
  42. PHYTONADIONE [Concomitant]
     Active Substance: PHYTONADIONE
     Route: 042
     Dates: start: 20240823, end: 20240823
  43. LOPERAMIDE [Concomitant]
     Active Substance: LOPERAMIDE
     Indication: Prophylaxis against diarrhoea
     Route: 048
     Dates: start: 20240718, end: 20240718
  44. Kcl retard slow k [Concomitant]
     Indication: Prophylaxis
     Route: 048
     Dates: start: 20240709, end: 20240822
  45. Kcl retard slow k [Concomitant]
     Indication: Blood potassium decreased
  46. PANTOPRAZOLE [Concomitant]
     Active Substance: PANTOPRAZOLE
     Indication: Gastrointestinal disorder prophylaxis
     Route: 048
     Dates: start: 20240702, end: 20240708
  47. SODIUM BICARBONATE [Concomitant]
     Active Substance: SODIUM BICARBONATE
     Indication: Prophylaxis
     Route: 048
     Dates: start: 20240714, end: 20240721
  48. SODIUM BICARBONATE [Concomitant]
     Active Substance: SODIUM BICARBONATE
     Route: 048
     Dates: start: 20240722, end: 20240729
  49. ACETAMINOPHEN [Concomitant]
     Active Substance: ACETAMINOPHEN
     Indication: Prophylaxis
     Route: 042
     Dates: start: 20240820, end: 20240823
  50. INSULIN GLULISINE [Concomitant]
     Active Substance: INSULIN GLULISINE
     Indication: Type 2 diabetes mellitus
     Route: 058
     Dates: start: 20240728, end: 20240729
  51. INSULIN GLULISINE [Concomitant]
     Active Substance: INSULIN GLULISINE
     Route: 058
     Dates: start: 20240803, end: 20240803
  52. INSULIN GLULISINE [Concomitant]
     Active Substance: INSULIN GLULISINE
     Route: 058
     Dates: start: 20240805, end: 20240806
  53. INSULIN GLULISINE [Concomitant]
     Active Substance: INSULIN GLULISINE
     Route: 058
     Dates: start: 20240807, end: 20240807
  54. INSULIN GLULISINE [Concomitant]
     Active Substance: INSULIN GLULISINE
     Route: 058
     Dates: start: 20240808, end: 20240809
  55. INSULIN GLULISINE [Concomitant]
     Active Substance: INSULIN GLULISINE
     Route: 058
     Dates: start: 20240811, end: 20240813
  56. ATORVASTATIN [Concomitant]
     Active Substance: ATORVASTATIN
     Indication: Cardiovascular event prophylaxis
     Route: 048
     Dates: start: 2024, end: 20240822
  57. POTASSIUM CHLORIDE [Concomitant]
     Active Substance: POTASSIUM CHLORIDE
     Indication: Prophylaxis
     Route: 042
     Dates: start: 20240724, end: 20240726
  58. POTASSIUM CHLORIDE [Concomitant]
     Active Substance: POTASSIUM CHLORIDE
     Route: 042
     Dates: start: 20240729, end: 20240731
  59. POTASSIUM CHLORIDE [Concomitant]
     Active Substance: POTASSIUM CHLORIDE
     Route: 042
     Dates: start: 20240820, end: 20240821
  60. POTASSIUM CHLORIDE [Concomitant]
     Active Substance: POTASSIUM CHLORIDE
     Route: 042
     Dates: start: 20240822, end: 20240822
  61. DEXAMETHASONE [Concomitant]
     Active Substance: DEXAMETHASONE
     Indication: Subdural haematoma evacuation
     Route: 042
     Dates: start: 20240722, end: 20240809
  62. LEVOTHYROXINE [Concomitant]
     Active Substance: LEVOTHYROXINE
     Indication: Hypothyroidism
     Route: 048
     Dates: start: 2018, end: 20240822

REACTIONS (4)
  - Disease progression [Fatal]
  - Subdural haematoma [Recovered/Resolved]
  - Escherichia infection [Unknown]
  - Staphylococcal infection [Unknown]

NARRATIVE: CASE EVENT DATE: 20240720
